FAERS Safety Report 4725079-9 (Version None)
Quarter: 2005Q3

REPORT INFORMATION
  Report Type: 
  Country: None (occurrence: None)
  Receive Date: 20050725
  Receipt Date: 20050711
  Transmission Date: 20060218
  Serious: Yes (Death, Hospitalization)
  Sender: FDA-Public Use
  Company Number: CLOF-10040

PATIENT
  Age: 62 Year
  Sex: Female
  Weight: 100 kg

DRUGS (7)
  1. CLOFARABINE [Suspect]
     Indication: ACUTE MYELOID LEUKAEMIA
     Dosage: 20 MG/M2 QD X 5 IV
     Route: 042
     Dates: start: 20050703, end: 20050707
  2. CYTARABINE [Concomitant]
  3. PRIMAXIN [Concomitant]
  4. TOBRAMYCIN [Concomitant]
  5. LINEZOLID [Concomitant]
  6. CASPOFUNGIN [Concomitant]
  7. METRONIDAZOLE [Concomitant]

REACTIONS (4)
  - CHEST X-RAY ABNORMAL [None]
  - HYPOTENSION [None]
  - LUNG DISORDER [None]
  - NEUTROPENIA [None]
